FAERS Safety Report 10162661 (Version 1)
Quarter: 2014Q2

REPORT INFORMATION
  Report Type: Spontaneous
  Country: US (occurrence: US)
  Receive Date: 20140509
  Receipt Date: 20140509
  Transmission Date: 20141212
  Serious: No
  Sender: FDA-Public Use
  Company Number: US-PFIZER INC-2014126618

PATIENT
  Age: 51 Year
  Sex: Female

DRUGS (13)
  1. PRISTIQ [Suspect]
     Dosage: 50 (NO UNIT PROVIDED), UNK
  2. CLARITHROMYCIN [Suspect]
     Dosage: UNK
  3. ERYTHROMYCIN [Suspect]
     Dosage: UNK
  4. TETRACYCLINE HCL [Suspect]
     Dosage: UNK
  5. LISINOPRIL [Suspect]
     Dosage: 20 (NO UNIT PROVIDED), UNK
  6. PRAVASTATIN SODIUM [Suspect]
     Dosage: UNK
  7. ASPIRIN [Suspect]
     Dosage: 81 (NO UNIT PROVIDED), UNK
  8. CAPTOPRIL [Suspect]
     Dosage: UNK
  9. BENZOTROPINE [Suspect]
     Dosage: 1 MG, UNK
  10. KLONOPIN [Suspect]
     Dosage: 1 MG, UNK
  11. ALBUTEROL [Suspect]
     Dosage: UNK
  12. AMBIEN [Suspect]
     Dosage: 10 MG, UNK
  13. DULERA [Suspect]
     Dosage: 200 UG, UNK

REACTIONS (1)
  - Drug hypersensitivity [Unknown]
